FAERS Safety Report 8815956 (Version 1)
Quarter: 2012Q4

REPORT INFORMATION
  Report Type: 
  Country: US (occurrence: US)
  Receive Date: 20120928
  Receipt Date: 20120928
  Transmission Date: 20130627
  Serious: Yes (Hospitalization, Other)
  Sender: FDA-Public Use
  Company Number: US-ROCHE-1124443

PATIENT
  Sex: Female

DRUGS (3)
  1. AVASTIN [Suspect]
     Indication: BREAST CANCER FEMALE
     Route: 065
     Dates: start: 20060508
  2. XELODA [Suspect]
     Indication: PRODUCT USED FOR UNKNOWN INDICATION
     Route: 065
  3. NAVELBINE [Concomitant]

REACTIONS (6)
  - Toxicity to various agents [Unknown]
  - Clostridium difficile colitis [Unknown]
  - Metastases to lung [Unknown]
  - Metastases to liver [Unknown]
  - Ulcer [Unknown]
  - Breast pain [Unknown]
